FAERS Safety Report 21460355 (Version 1)
Quarter: 2022Q4

REPORT INFORMATION
  Report Type: Spontaneous
  Country: JP (occurrence: JP)
  Receive Date: 20221014
  Receipt Date: 20221014
  Transmission Date: 20230113
  Serious: Yes (Hospitalization, Other)
  Sender: FDA-Public Use
  Company Number: JP-PAIPHARMA-2022-JP-000437

PATIENT
  Age: 76 Year
  Sex: Female

DRUGS (2)
  1. PREDNISOLONE SODIUM PHOSPHATE [Suspect]
     Active Substance: PREDNISOLONE SODIUM PHOSPHATE
     Indication: Polymyalgia rheumatica
     Dosage: 1 MG DAILY
  2. VOGLIBOSE [Suspect]
     Active Substance: VOGLIBOSE
     Indication: Diabetes mellitus
     Dosage: 0.6 MG DAILY

REACTIONS (1)
  - Pneumatosis intestinalis [Recovered/Resolved]
